FAERS Safety Report 5400390-7 (Version None)
Quarter: 2007Q3

REPORT INFORMATION
  Report Type: 
  Country: None (occurrence: None)
  Receive Date: 20070725
  Receipt Date: 20070710
  Transmission Date: 20080115
  Serious: Yes (Death, Hospitalization)
  Sender: FDA-Public Use
  Company Number: 8018342

PATIENT
  Age: 22 Year
  Sex: Female
  Weight: 59 kg

DRUGS (2)
  1. KEPPRA [Suspect]
     Indication: CONVULSION
     Dosage: 1000 MG /D
  2. TEGRETOL [Suspect]
     Indication: CONVULSION
     Dosage: 1000 MG /D

REACTIONS (16)
  - ACIDOSIS [None]
  - AGITATION [None]
  - DRUG TOXICITY [None]
  - GRAND MAL CONVULSION [None]
  - HEMIPARESIS [None]
  - HEPATIC FAILURE [None]
  - HEPATIC NECROSIS [None]
  - HEPATIC STEATOSIS [None]
  - HEPATOCELLULAR DAMAGE [None]
  - HYPERTHERMIA [None]
  - HYPOTENSION [None]
  - ISCHAEMIA [None]
  - RENAL FAILURE [None]
  - RENAL TUBULAR NECROSIS [None]
  - SHOCK [None]
  - TACHYCARDIA [None]
